FAERS Safety Report 6425609-5 (Version None)
Quarter: 2009Q4

REPORT INFORMATION
  Report Type: 
  Country: None (occurrence: None)
  Receive Date: 20091016
  Receipt Date: 20080212
  Transmission Date: 20100525
  Serious: Yes (Hospitalization)
  Sender: FDA-Public Use
  Company Number: A03200800601

PATIENT
  Age: 63 Year
  Sex: Male

DRUGS (5)
  1. OXALIPLATIN [Suspect]
     Dosage: INTRAVENOUS NOS
     Route: 042
  2. LEUCOVORIN - SOLUTION - UNIT DOSE : UNKNOWN [Suspect]
     Dosage: INTRAVENOUS NOS
     Route: 042
  3. FLUOROURACIL [Suspect]
     Dosage: INTRAVENOUS NOS
     Route: 042
  4. CETUXIMAB [Concomitant]
  5. BEVACIZUMAB [Concomitant]

REACTIONS (1)
  - ABDOMINAL PAIN [None]
